FAERS Safety Report 20560678 (Version 1)
Quarter: 2022Q1

REPORT INFORMATION
  Report Type: Spontaneous
  Country: AU (occurrence: None)
  Receive Date: 20220306
  Receipt Date: 20220306
  Transmission Date: 20220423
  Serious: Yes (Disabling)
  Sender: FDA-Public Use
  Company Number: None

PATIENT
  Age: 95 Year
  Sex: Male
  Weight: 70 kg

DRUGS (13)
  1. PANADOL [Suspect]
     Active Substance: ACETAMINOPHEN
     Indication: Fall
     Dosage: OTHER QUANTITY : 1 TABLET(S);?FREQUENCY : EVERY 6 HOURS;?
     Route: 048
     Dates: start: 20220225, end: 20220301
  2. PANADOL [Suspect]
     Active Substance: ACETAMINOPHEN
     Indication: Abdominal pain
  3. GLICLAZIDE [Concomitant]
     Active Substance: GLICLAZIDE
  4. PLAVIX [Concomitant]
     Active Substance: CLOPIDOGREL BISULFATE
  5. ASPIRIN [Concomitant]
     Active Substance: ASPIRIN
  6. PANTOPRAZOLE SODIUM [Concomitant]
     Active Substance: PANTOPRAZOLE SODIUM
  7. LASIX [Concomitant]
     Active Substance: FUROSEMIDE
  8. LIPITOR [Concomitant]
     Active Substance: ATORVASTATIN CALCIUM
  9. METOPROLOL [Concomitant]
     Active Substance: METOPROLOL
  10. MIRTAZAPINE [Concomitant]
     Active Substance: MIRTAZAPINE
  11. PERINDOPRIL [Concomitant]
     Active Substance: PERINDOPRIL
  12. VITAMIN B [Concomitant]
     Active Substance: VITAMIN B
  13. SUSTAGEN [Concomitant]

REACTIONS (3)
  - Peripheral swelling [None]
  - Diarrhoea [None]
  - Product label issue [None]

NARRATIVE: CASE EVENT DATE: 20220225
